FAERS Safety Report 8090795-0 (Version None)
Quarter: 2012Q1

REPORT INFORMATION
  Report Type: 
  Country: None (occurrence: None)
  Receive Date: 20120131
  Receipt Date: 20120120
  Transmission Date: 20120608
  Serious: Yes (Hospitalization, Other)
  Sender: FDA-Public Use
  Company Number: US-BAYER-2011-046242

PATIENT
  Age: 31 Year
  Sex: Female
  Weight: 123 kg

DRUGS (10)
  1. TRAMADOL HCL [Concomitant]
     Indication: PAIN
     Dosage: 50 MG, 1 EVERY 6 HOURS AS NEEDED
     Dates: start: 20070313
  2. LEVAQUIN [Concomitant]
     Dosage: 500 MG, UNK
     Dates: start: 20070320
  3. VICODIN [Concomitant]
  4. ALBUTEROL [Concomitant]
     Dosage: 2 PUFFS EVERY 4 HOURS UNTIL SYMPTOMS IMPROVE
     Dates: start: 20070313
  5. YASMIN [Suspect]
     Indication: PREMENSTRUAL SYNDROME
     Dosage: UNK
     Dates: start: 20060217, end: 20070322
  6. XOPENEX [Concomitant]
  7. IBUPROFEN [Concomitant]
     Dosage: 400 MG, EVERY 6 HOURS AS NEEDED
  8. NORFLEX [Concomitant]
     Dosage: 100 MG, BID
     Route: 048
  9. ZITHROMAX [Concomitant]
     Dosage: UNK
     Dates: start: 20070301
  10. NAPROSYN [Concomitant]
     Dosage: UNK
     Dates: start: 20070301

REACTIONS (19)
  - OEDEMA PERIPHERAL [None]
  - PYREXIA [None]
  - BIPOLAR DISORDER [None]
  - CHEST PAIN [None]
  - DEPRESSION [None]
  - POST-TRAUMATIC STRESS DISORDER [None]
  - HAEMOPTYSIS [None]
  - DEEP VEIN THROMBOSIS [None]
  - URINARY TRACT INFECTION [None]
  - PAIN [None]
  - PULMONARY EMBOLISM [None]
  - SKIN WARM [None]
  - ANHEDONIA [None]
  - DYSPNOEA PAROXYSMAL NOCTURNAL [None]
  - COUGH [None]
  - ORTHOPNOEA [None]
  - CHILLS [None]
  - DYSPNOEA [None]
  - EMOTIONAL DISTRESS [None]
